FAERS Safety Report 7237555-8 (Version None)
Quarter: 2011Q1

REPORT INFORMATION
  Report Type: 
  Country: None (occurrence: None)
  Receive Date: 20110121
  Receipt Date: 20110113
  Transmission Date: 20110831
  Serious: Yes (Hospitalization)
  Sender: FDA-Public Use
  Company Number: CH-AMGEN AB-UK302229

PATIENT

DRUGS (9)
  1. BLACK COHOSH [Concomitant]
     Dosage: 6.5 MG, QD
     Route: 048
  2. METOPROLOL SUCCINATE [Concomitant]
     Dosage: 47.5 MG, QD
     Route: 048
  3. NEULASTA [Suspect]
     Indication: CHEMOTHERAPY
     Dosage: 6 MG, Q2WK
     Route: 041
     Dates: start: 20080606, end: 20080708
  4. ONDANSETRON HYDROCHLORIDE [Concomitant]
     Dosage: 4 MG, UNK
     Route: 041
     Dates: start: 20080519
  5. METHYLPREDNISOLONE SODIUM SUCCINATE [Concomitant]
     Dosage: 50 MG, QWK
     Route: 041
     Dates: start: 20080519
  6. CYCLOPHOSPHAMIDE [Suspect]
     Dosage: 1300 MG, Q2WK
     Route: 041
     Dates: start: 20080519, end: 20080707
  7. EPIRUBICIN [Suspect]
     Dosage: 160 MG, Q2WK
     Route: 041
     Dates: start: 20080519, end: 20080707
  8. PACLITAXEL [Suspect]
     Dosage: 310 MG, Q2WK
     Route: 041
     Dates: start: 20080721
  9. METOCLOPRAMIDE HYDROCHLORIDE [Concomitant]
     Dosage: 10 MG, QWK
     Route: 041
     Dates: start: 20080519

REACTIONS (1)
  - LUNG INFILTRATION [None]
